FAERS Safety Report 9759783 (Version 2)
Quarter: 2014Q1

REPORT INFORMATION
  Report Type: Report from Study
  Country: FR (occurrence: FR)
  Receive Date: 20131216
  Receipt Date: 20140116
  Transmission Date: 20141002
  Serious: Yes (Other)
  Sender: FDA-Public Use
  Company Number: FR-009507513-1312FRA006036

PATIENT
  Sex: 0

DRUGS (4)
  1. VICTRELIS [Suspect]
     Indication: HEPATITIS C
     Route: 065
  2. RIBAVIRIN [Suspect]
     Indication: HEPATITIS C
     Route: 048
  3. PEGINTERFERON ALFA-2A [Suspect]
     Indication: HEPATITIS C
     Route: 058
  4. TELAPREVIR [Suspect]
     Indication: HEPATITIS C

REACTIONS (3)
  - Virologic failure [Unknown]
  - Anaemia [Unknown]
  - Rash [Unknown]
